FAERS Safety Report 9658340 (Version 1)
Quarter: 2013Q4

REPORT INFORMATION
  Report Type: Spontaneous
  Country: US (occurrence: US)
  Receive Date: 20131030
  Receipt Date: 20131030
  Transmission Date: 20140711
  Serious: No
  Sender: FDA-Public Use
  Company Number: US-PURDUE-USA-2012-0083969

PATIENT
  Sex: Male

DRUGS (3)
  1. OXYCODONE HYDROCHLORIDE (SIMILAR TO NDA 22-272) [Suspect]
     Indication: BREAKTHROUGH PAIN
     Dosage: UNK, Q8H PRN
     Route: 048
  2. OXYCONTIN (NDA 22-272) [Concomitant]
     Indication: PAIN
     Dosage: 20 MG, Q12H
  3. OXYCONTIN (NDA 22-272) [Concomitant]
     Dosage: 10 MG, Q12H

REACTIONS (1)
  - Drug ineffective [Unknown]
